APPROVED DRUG PRODUCT: PEPCID RPD
Active Ingredient: FAMOTIDINE
Strength: 20MG
Dosage Form/Route: TABLET, ORALLY DISINTEGRATING;ORAL
Application: N020752 | Product #001
Applicant: MERCK RESEARCH LABORATORIES DIV MERCK CO INC
Approved: May 28, 1998 | RLD: No | RS: No | Type: DISCN